FAERS Safety Report 22601043 (Version 1)
Quarter: 2023Q2

REPORT INFORMATION
  Report Type: Spontaneous
  Country: JP (occurrence: None)
  Receive Date: 20230614
  Receipt Date: 20230614
  Transmission Date: 20230722
  Serious: Yes (Hospitalization)
  Sender: FDA-Public Use
  Company Number: 2023A134411

PATIENT
  Age: 69 Year
  Sex: Male

DRUGS (2)
  1. DAPAGLIFLOZIN [Suspect]
     Active Substance: DAPAGLIFLOZIN
     Indication: Cardiac failure chronic
     Dosage: 5.0MG UNKNOWN
     Route: 048
  2. METHIMAZOLE [Concomitant]
     Active Substance: METHIMAZOLE
     Indication: Cardiac failure chronic
     Dosage: DOSE UNKNOWN
     Route: 048

REACTIONS (3)
  - Acute kidney injury [Recovering/Resolving]
  - Euglycaemic diabetic ketoacidosis [Unknown]
  - Enteritis infectious [Unknown]
